FAERS Safety Report 19621010 (Version 3)
Quarter: 2021Q4

REPORT INFORMATION
  Report Type: Spontaneous
  Country: UA (occurrence: UA)
  Receive Date: 20210728
  Receipt Date: 20211103
  Transmission Date: 20220303
  Serious: Yes (Other)
  Sender: FDA-Public Use
  Company Number: UA-ASTELLAS-2021US026019

PATIENT
  Age: 69 Year
  Sex: Male
  Weight: 110 kg

DRUGS (3)
  1. MIRABEGRON [Suspect]
     Active Substance: MIRABEGRON
     Indication: Dysuria
     Route: 048
     Dates: start: 202106, end: 20210628
  2. MIRABEGRON [Suspect]
     Active Substance: MIRABEGRON
     Dosage: 50 MG, ONCE DAILY (AT EVENING, INDEPENDENT OF FOOD INTAKE)
     Route: 048
     Dates: start: 202108
  3. ASPIRIN [Concomitant]
     Active Substance: ASPIRIN
     Indication: Cardiac disorder
     Dosage: UNK UNK, UNKNOWN FREQ.
     Route: 065

REACTIONS (3)
  - Loss of consciousness [Recovered/Resolved]
  - Hypoaesthesia [Recovered/Resolved]
  - Dizziness [Recovered/Resolved]

NARRATIVE: CASE EVENT DATE: 20210628
